FAERS Safety Report 7373741-4 (Version None)
Quarter: 2011Q1

REPORT INFORMATION
  Report Type: 
  Country: None (occurrence: None)
  Receive Date: 20110325
  Receipt Date: 20110315
  Transmission Date: 20110831
  Serious: No
  Sender: FDA-Public Use
  Company Number: US-JNJFOC-20110307287

PATIENT
  Sex: Female

DRUGS (2)
  1. FENTANYL [Suspect]
     Indication: BONE DISORDER
     Route: 062
  2. FENTANYL [Suspect]
     Indication: FIBROMYALGIA
     Route: 062

REACTIONS (1)
  - DRUG DOSE OMISSION [None]
